FAERS Safety Report 23090505 (Version 1)
Quarter: 2023Q4

REPORT INFORMATION
  Report Type: Spontaneous
  Country: GB (occurrence: GB)
  Receive Date: 20231020
  Receipt Date: 20231020
  Transmission Date: 20240110
  Serious: Yes (Other)
  Sender: FDA-Public Use
  Company Number: GB-JAZZ PHARMACEUTICALS-2023-GB-021205

PATIENT
  Age: 71 Year
  Sex: Male

DRUGS (1)
  1. VYXEOS [Suspect]
     Active Substance: CYTARABINE\DAUNORUBICIN
     Indication: Product used for unknown indication

REACTIONS (7)
  - Acute kidney injury [Unknown]
  - Anuria [Unknown]
  - Pneumonia [Unknown]
  - Pericardial effusion [Unknown]
  - Ejection fraction decreased [Unknown]
  - Pseudomonas test positive [Unknown]
  - Stenotrophomonas test positive [Unknown]
